FAERS Safety Report 9158662 (Version 1)
Quarter: 2013Q1

REPORT INFORMATION
  Report Type: Spontaneous
  Country: US (occurrence: US)
  Receive Date: 20130312
  Receipt Date: 20130312
  Transmission Date: 20140127
  Serious: Yes (Other)
  Sender: FDA-Public Use
  Company Number: US-ELI_LILLY_AND_COMPANY-US201303001058

PATIENT
  Sex: Male

DRUGS (2)
  1. AXIRON [Suspect]
     Indication: HYPOGONADISM
     Dosage: 60 MG, UNK
  2. HYDROCODONE [Concomitant]
     Indication: PAIN

REACTIONS (2)
  - Loss of consciousness [Unknown]
  - Road traffic accident [Unknown]
